FAERS Safety Report 7919299-X (Version None)
Quarter: 2011Q4

REPORT INFORMATION
  Report Type: 
  Country: None (occurrence: None)
  Receive Date: 20111117
  Receipt Date: 20111109
  Transmission Date: 20120403
  Serious: Yes (Life-Threatening, Hospitalization)
  Sender: FDA-Public Use
  Company Number: CA-JNJFOC-20111101416

PATIENT
  Sex: Male
  Weight: 89.36 kg

DRUGS (1)
  1. STELARA [Suspect]
     Indication: PSORIASIS
     Route: 058
     Dates: start: 20101021

REACTIONS (2)
  - CEREBROVASCULAR ACCIDENT [None]
  - OESOPHAGEAL CARCINOMA [None]
